FAERS Safety Report 24208891 (Version 2)
Quarter: 2024Q3

REPORT INFORMATION
  Report Type: Spontaneous
  Country: US (occurrence: US)
  Receive Date: 20240814
  Receipt Date: 20240830
  Transmission Date: 20241017
  Serious: Yes (Hospitalization)
  Sender: ANI
  Company Number: US-ANIPHARMA-2024-US-040680

PATIENT
  Age: 65 Year
  Sex: Female
  Weight: 69.85 kg

DRUGS (32)
  1. CORTICOTROPIN [Suspect]
     Active Substance: CORTICOTROPIN
     Indication: Sarcoidosis
     Dosage: 80 UNITS -1 ML 2 TIMES A WEEK
     Route: 058
     Dates: start: 202404
  2. VITAMIN E [Concomitant]
     Active Substance: .ALPHA.-TOCOPHEROL
  3. VITAMIN B12 [Concomitant]
     Active Substance: CYANOCOBALAMIN
  4. ALBUTEROL [Concomitant]
     Active Substance: ALBUTEROL
  5. COMBIVENT RESPIMAT [Concomitant]
     Active Substance: ALBUTEROL SULFATE\IPRATROPIUM BROMIDE
  6. OMEPRAZOLE [Concomitant]
     Active Substance: OMEPRAZOLE
  7. LOSARTAN POTASSIUM [Concomitant]
     Active Substance: LOSARTAN POTASSIUM
  8. DULOXETINE HYDROCHLORIDE [Concomitant]
     Active Substance: DULOXETINE HYDROCHLORIDE
  9. AMLODIPINE B [Concomitant]
  10. POTASSIUM CHLORIDE [Concomitant]
     Active Substance: POTASSIUM CHLORIDE
  11. METOCLOPRAMIDE HYDROCHLOR [Concomitant]
  12. BUDESONIDE [Concomitant]
     Active Substance: BUDESONIDE
  13. ARNUITY ELLIPTA [Concomitant]
     Active Substance: FLUTICASONE FUROATE
  14. CARVEDILOL [Concomitant]
     Active Substance: CARVEDILOL
  15. CEVIMELINE [Concomitant]
     Active Substance: CEVIMELINE
  16. ESTRADIOL [Concomitant]
     Active Substance: ESTRADIOL
  17. EXEMESTANE [Concomitant]
     Active Substance: EXEMESTANE
  18. HYDROCHLOROTHIAZIDE [Concomitant]
     Active Substance: HYDROCHLOROTHIAZIDE
  19. IPRATROPIUM BROMIDE [Concomitant]
     Active Substance: IPRATROPIUM BROMIDE\IPRATROPIUM BROMIDE ANHYDROUS
  20. LEFLUNOMIDE [Concomitant]
     Active Substance: LEFLUNOMIDE
  21. sodium potassium magnesium sulphate [Concomitant]
  22. TIZANIDINE [Concomitant]
     Active Substance: TIZANIDINE
  23. NUCALA [Concomitant]
     Active Substance: MEPOLIZUMAB
  24. TRAMADOL [Concomitant]
     Active Substance: TRAMADOL\TRAMADOL HYDROCHLORIDE
  25. tramadol with acetaminophen [Concomitant]
  26. Yupelri nebulizer [Concomitant]
  27. ACTEMRA [Concomitant]
     Active Substance: TOCILIZUMAB
     Route: 042
     Dates: start: 20240814
  28. SIMPONI [Concomitant]
     Active Substance: GOLIMUMAB
     Dates: end: 202408
  29. ROSUVASTATIN CALCIUM [Concomitant]
     Active Substance: ROSUVASTATIN CALCIUM
  30. FLUTICASONE FUROATE/VILAN [Concomitant]
  31. FOLIC ACID [Concomitant]
     Active Substance: FOLIC ACID
  32. TOPIRAMATE [Concomitant]
     Active Substance: TOPIRAMATE

REACTIONS (5)
  - Impaired gastric emptying [Unknown]
  - Weight decreased [Unknown]
  - Contraindicated product administered [Not Recovered/Not Resolved]
  - Pain [Not Recovered/Not Resolved]
  - Joint swelling [Unknown]

NARRATIVE: CASE EVENT DATE: 20240401
